FAERS Safety Report 11401298 (Version 1)
Quarter: 2015Q3

REPORT INFORMATION
  Report Type: Report from Study
  Country: RU (occurrence: RU)
  Receive Date: 20150820
  Receipt Date: 20150820
  Transmission Date: 20151125
  Serious: Yes (Other)
  Sender: FDA-Public Use
  Company Number: RU-BAXTER-2015BAX045024

PATIENT

DRUGS (3)
  1. ENDOKSAN POROSHOK DLJA PRIGOTOVLENIJA RASTVORA DLJA VNUTRIVENNOGO VVED [Suspect]
     Active Substance: CYCLOPHOSPHAMIDE
     Indication: HAEMATOPOIETIC STEM CELL MOBILISATION
     Dosage: 4 GRAM PER METER SQUARE, HIGH DOSE
     Route: 042
  2. BORTEZOMIB [Suspect]
     Active Substance: BORTEZOMIB
     Indication: PLASMA CELL MYELOMA
     Route: 065
  3. BORTEZOMIB [Suspect]
     Active Substance: BORTEZOMIB
     Indication: CHEMOTHERAPY

REACTIONS (2)
  - Disease complication [Unknown]
  - Thrombosis [Unknown]
